FAERS Safety Report 24276634 (Version 1)
Quarter: 2024Q3

REPORT INFORMATION
  Report Type: Spontaneous
  Country: US (occurrence: US)
  Receive Date: 20240903
  Receipt Date: 20240903
  Transmission Date: 20241017
  Serious: No
  Sender: BAYER
  Company Number: US-BAYER-2024A124242

PATIENT
  Age: 80 Year
  Sex: Female
  Weight: 73.9 kg

DRUGS (12)
  1. MIRALAX [Suspect]
     Active Substance: POLYETHYLENE GLYCOL 3350
  2. TADALAFIL [Suspect]
     Active Substance: TADALAFIL
  3. TYVASO [Suspect]
     Active Substance: TREPROSTINIL
     Indication: Pulmonary arterial hypertension
     Dosage: 48 ?G, QID
     Route: 055
  4. CLARITIN [Concomitant]
     Active Substance: LORATADINE
  5. TYLENOL EXTRA STRENGTH [Concomitant]
     Active Substance: ACETAMINOPHEN
  6. LASIX [Concomitant]
     Active Substance: FUROSEMIDE
  7. CALTRATE [Concomitant]
     Active Substance: CALCIUM CARBONATE
  8. FLUOROMETHOLONE [Concomitant]
     Active Substance: FLUOROMETHOLONE
  9. POTASSIUM CHLORIDE [Concomitant]
     Active Substance: POTASSIUM CHLORIDE
  10. ASPIRIN [Concomitant]
     Active Substance: ASPIRIN
  11. VITAMINS [Concomitant]
     Active Substance: VITAMINS
  12. OXYGEN [Concomitant]
     Active Substance: OXYGEN

REACTIONS (4)
  - Alopecia [None]
  - Hair growth abnormal [None]
  - Diarrhoea [Not Recovered/Not Resolved]
  - Chromaturia [None]

NARRATIVE: CASE EVENT DATE: 20240101
